FAERS Safety Report 19478989 (Version 3)
Quarter: 2021Q3

REPORT INFORMATION
  Report Type: Spontaneous
  Country: IE (occurrence: IE)
  Receive Date: 20210630
  Receipt Date: 20210713
  Transmission Date: 20211014
  Serious: Yes (Other)
  Sender: FDA-Public Use
  Company Number: IE-PFIZER INC-2021730399

PATIENT
  Age: 57 Year
  Sex: Male

DRUGS (10)
  1. METFORMIN [Suspect]
     Active Substance: METFORMIN HYDROCHLORIDE
     Dosage: UNK
     Route: 065
  2. SITAGLIPTIN [Suspect]
     Active Substance: SITAGLIPTIN
     Dosage: UNK
     Route: 065
  3. ASPIRIN [ACETYLSALICYLIC ACID] [Suspect]
     Active Substance: ASPIRIN
     Dosage: UNK
     Route: 065
  4. FEBUXOSTAT. [Suspect]
     Active Substance: FEBUXOSTAT
     Dosage: UNK
  5. ATORVASTATIN CALCIUM. [Suspect]
     Active Substance: ATORVASTATIN CALCIUM
     Dosage: UNK
     Route: 065
  6. PREDNISOLONE. [Suspect]
     Active Substance: PREDNISOLONE
     Indication: BELL^S PALSY
     Dosage: UNK
     Route: 065
  7. VALSARTAN. [Suspect]
     Active Substance: VALSARTAN
     Dosage: UNK
     Route: 065
  8. PANTOPRAZOLE [Suspect]
     Active Substance: PANTOPRAZOLE
     Dosage: UNK
     Route: 065
  9. DIAMICRON [Suspect]
     Active Substance: GLICLAZIDE
     Dosage: UNK
  10. DOXAZOSIN MESILATE [Suspect]
     Active Substance: DOXAZOSIN MESYLATE
     Dosage: UNK
     Route: 065

REACTIONS (12)
  - Pyoderma gangrenosum [Unknown]
  - Skin erosion [Unknown]
  - Aspergillus infection [Unknown]
  - Fungal infection [Unknown]
  - Infection [Unknown]
  - Ulcer [Recovered/Resolved]
  - Rash [Unknown]
  - Ecthyma [Unknown]
  - Papule [Recovered/Resolved]
  - Neurodermatitis [Unknown]
  - Nodular rash [Unknown]
  - Vasculitis [Unknown]
